FAERS Safety Report 8926327 (Version 1)
Quarter: 2012Q4

REPORT INFORMATION
  Report Type: 
  Country: US (occurrence: US)
  Receive Date: 20121127
  Receipt Date: 20121127
  Transmission Date: 20130627
  Serious: Yes (Hospitalization)
  Sender: FDA-Public Use
  Company Number: US-GLAXOSMITHKLINE-A0875843A

PATIENT
  Age: 64 Year
  Sex: Female

DRUGS (2)
  1. AVANDIA [Suspect]
     Indication: DIABETES MELLITUS
     Dosage: 8MG Per day
     Route: 048
     Dates: start: 20030703, end: 20040419
  2. AVANDAMET [Suspect]
     Indication: DIABETES MELLITUS
     Route: 048
     Dates: start: 20030807, end: 20050915

REACTIONS (3)
  - Transient ischaemic attack [Not Recovered/Not Resolved]
  - Renal failure acute [Unknown]
  - Cardiac pacemaker insertion [Unknown]
